FAERS Safety Report 20553087 (Version 1)
Quarter: 2022Q1

REPORT INFORMATION
  Report Type: Spontaneous
  Country: US (occurrence: US)
  Receive Date: 20220304
  Receipt Date: 20220304
  Transmission Date: 20220423
  Serious: Yes (Hospitalization)
  Sender: FDA-Public Use
  Company Number: US-Fresenius Kabi-FK202202514

PATIENT
  Age: 31 Year
  Sex: Male

DRUGS (2)
  1. TOBRAMYCIN [Suspect]
     Active Substance: TOBRAMYCIN
     Indication: Pneumonia bacterial
     Route: 042
  2. MEROPENEM [Suspect]
     Active Substance: MEROPENEM
     Indication: Pneumonia bacterial
     Route: 042

REACTIONS (1)
  - Candida pneumonia [Recovered/Resolved]
